FAERS Safety Report 16799031 (Version 1)
Quarter: 2019Q3

REPORT INFORMATION
  Report Type: Spontaneous
  Country: US (occurrence: US)
  Receive Date: 20190912
  Receipt Date: 20190912
  Transmission Date: 20191005
  Serious: Yes (Hospitalization, Other)
  Sender: FDA-Public Use
  Company Number: US-ADVANZ PHARMA-201908000267

PATIENT

DRUGS (2)
  1. HYDROXYCHLOROQUINE [Suspect]
     Active Substance: HYDROXYCHLOROQUINE
     Indication: SERONEGATIVE ARTHRITIS
  2. HYDROXYCHLOROQUINE [Suspect]
     Active Substance: HYDROXYCHLOROQUINE
     Indication: ARTHRITIS
     Dosage: 200 MG, BID
     Route: 065

REACTIONS (9)
  - Cough [Recovering/Resolving]
  - Sinus tachycardia [Recovering/Resolving]
  - Toxicity to various agents [Recovering/Resolving]
  - Pleural effusion [Recovering/Resolving]
  - Cardiac failure [Recovering/Resolving]
  - Dyspnoea [Recovering/Resolving]
  - Systolic dysfunction [Recovering/Resolving]
  - Congestive cardiomyopathy [Recovering/Resolving]
  - Chest pain [Recovering/Resolving]
